FAERS Safety Report 17206059 (Version 1)
Quarter: 2020Q1

REPORT INFORMATION
  Report Type: Spontaneous
  Country: US (occurrence: US)
  Receive Date: 20191226
  Receipt Date: 20191226
  Transmission Date: 20200409
  Serious: Yes (Death)
  Sender: FDA-Public Use
  Company Number: None

PATIENT
  Age: 54 Year
  Sex: Male
  Weight: 66.6 kg

DRUGS (10)
  1. HALOPERIDOL LACTATE 2MG/ML [Concomitant]
     Dates: start: 20191127, end: 20191223
  2. LEVETIRACETAM. [Suspect]
     Active Substance: LEVETIRACETAM
     Indication: SEIZURE PROPHYLAXIS
     Route: 048
     Dates: start: 20161221, end: 20191223
  3. SENNA 8.6MG [Concomitant]
     Dates: start: 20191127, end: 20191223
  4. ATROPINE 1% OPTH DROPS [Concomitant]
     Dates: start: 20191127, end: 20191223
  5. PHENYTOIN 125MG/5ML [Concomitant]
     Active Substance: PHENYTOIN SODIUM
     Dates: start: 20190404, end: 20191223
  6. ACETAMINOPHEN 650MG SUPPOSITORY [Concomitant]
     Dates: start: 20191127, end: 20191223
  7. ACETAMINOPHEN 500MG [Concomitant]
     Active Substance: ACETAMINOPHEN
     Dates: start: 20191127, end: 20191223
  8. BISACODYL 10MG SUPPOSITORY [Concomitant]
     Dates: start: 20191127, end: 20191223
  9. MORPHINE 100MG/5ML [Concomitant]
     Dates: start: 20191127, end: 20191223
  10. LORAZEPAM 0.5MG [Concomitant]
     Active Substance: LORAZEPAM
     Dates: start: 20191127, end: 20191223

REACTIONS (1)
  - Recalled product administered [None]

NARRATIVE: CASE EVENT DATE: 20191223
